FAERS Safety Report 6656676-1 (Version None)
Quarter: 2010Q1

REPORT INFORMATION
  Report Type: 
  Country: None (occurrence: None)
  Receive Date: 20100329
  Receipt Date: 20100323
  Transmission Date: 20100710
  Serious: Yes (Hospitalization)
  Sender: FDA-Public Use
  Company Number: DE-ABBOTT-10P-062-0634358-00

PATIENT
  Sex: Female

DRUGS (2)
  1. KALETRA [Suspect]
     Indication: HIV INFECTION
     Dosage: 2 TABLETS THREE TIMES DAILY
     Route: 048
     Dates: start: 20090302
  2. TRUVADA [Concomitant]
     Indication: HIV INFECTION
     Dosage: 1 TABLET OD
     Route: 048
     Dates: start: 20090302

REACTIONS (1)
  - FEMALE GENITAL TRACT TUBERCULOSIS [None]
